FAERS Safety Report 9408247 (Version 1)
Quarter: 2013Q3

REPORT INFORMATION
  Report Type: Report from Study
  Country: BE (occurrence: BE)
  Receive Date: 20130718
  Receipt Date: 20130718
  Transmission Date: 20140515
  Serious: Yes (Hospitalization, Other)
  Sender: FDA-Public Use
  Company Number: BE-ABBOTT-13P-013-1117429-00

PATIENT
  Age: 54 Year
  Sex: Female

DRUGS (12)
  1. HUMIRA [Suspect]
     Indication: PSORIATIC ARTHROPATHY
     Dates: start: 201012, end: 20120731
  2. HUMIRA [Suspect]
     Dates: start: 20120915
  3. CINNARIZIN [Concomitant]
     Indication: HYPERSENSITIVITY
  4. MANIPREX [Concomitant]
     Indication: AFFECTIVE DISORDER
  5. DEPAKIN CHRONO [Concomitant]
     Indication: AFFECTIVE DISORDER
     Dosage: 145MG/333MG
  6. EMCORETIC [Concomitant]
     Indication: HYPERTENSION
     Dosage: 5MG/12.5MG
  7. LIPITOR [Concomitant]
     Indication: HYPERCHOLESTEROLAEMIA
  8. METFORMAX [Concomitant]
     Indication: DIABETES MELLITUS
  9. PANTOPRAZOL [Concomitant]
     Indication: ABDOMINAL DISCOMFORT
  10. ZALDIAR [Concomitant]
     Indication: PAIN
     Dosage: WHEN NEEDED/37.5MG + 325MG
  11. LEDERTREXATE [Concomitant]
     Indication: RHEUMATOID ARTHRITIS
  12. FOLIC ACID [Concomitant]
     Indication: RHEUMATOID ARTHRITIS

REACTIONS (2)
  - Fatigue [Unknown]
  - Thymoma [Recovered/Resolved]
